FAERS Safety Report 10434204 (Version 2)
Quarter: 2014Q3

REPORT INFORMATION
  Report Type: Not Available
  Country: CN (occurrence: CN)
  Receive Date: 20140905
  Receipt Date: 20140919
  Transmission Date: 20150326
  Serious: Yes (Hospitalization)
  Sender: FDA-Public Use
  Company Number: CN-NAPPMUNDI-GBR-2014-0021083

PATIENT
  Age: 60 Year
  Sex: Male
  Weight: 51 kg

DRUGS (5)
  1. GLYCERIN                           /00200601/ [Concomitant]
  2. SENNA LEAF [Concomitant]
     Active Substance: SENNA LEAF
  3. MS CONTIN [Suspect]
     Active Substance: MORPHINE SULFATE
     Indication: CANCER PAIN
     Dosage: 30 MG, Q12H
     Route: 048
     Dates: start: 20130604, end: 20130606
  4. MS CONTIN [Suspect]
     Active Substance: MORPHINE SULFATE
     Dosage: 60 MG, Q12H
     Route: 048
     Dates: start: 20130529, end: 20130529
  5. MORPHINE HYDROCHLORIDE [Suspect]
     Active Substance: MORPHINE HYDROCHLORIDE
     Indication: CANCER PAIN
     Dosage: 15 MG, Q4H
     Route: 048
     Dates: start: 20130528, end: 20130528

REACTIONS (1)
  - Delirium [Recovered/Resolved]

NARRATIVE: CASE EVENT DATE: 20130529
